FAERS Safety Report 21607318 (Version 1)
Quarter: 2022Q4

REPORT INFORMATION
  Report Type: Spontaneous
  Country: US (occurrence: US)
  Receive Date: 20221117
  Receipt Date: 20221117
  Transmission Date: 20230112
  Serious: No
  Sender: FDA-Public Use
  Company Number: US-AUROBINDO-AUR-APL-2021-044576

PATIENT
  Sex: Female

DRUGS (1)
  1. LOSARTAN [Suspect]
     Active Substance: LOSARTAN
     Indication: Blood pressure measurement
     Dosage: UNK
     Route: 065

REACTIONS (2)
  - Blood pressure fluctuation [Unknown]
  - Blood pressure inadequately controlled [Unknown]
